FAERS Safety Report 15337507 (Version 5)
Quarter: 2018Q3

REPORT INFORMATION
  Report Type: Spontaneous
  Country: US (occurrence: US)
  Receive Date: 20180831
  Receipt Date: 20180927
  Transmission Date: 20181010
  Serious: No
  Sender: FDA-Public Use
  Company Number: US-PFIZER INC-2018339175

PATIENT
  Age: 68 Year
  Sex: Male
  Weight: 123.3 kg

DRUGS (4)
  1. CYMBALTA [Suspect]
     Active Substance: DULOXETINE HYDROCHLORIDE
     Indication: DIABETIC NEUROPATHY
     Dosage: UNK
     Dates: start: 2018, end: 2018
  2. NEURONTIN [Suspect]
     Active Substance: GABAPENTIN
     Indication: DIABETIC NEUROPATHY
     Dosage: 800 MG, 2X/DAY
     Dates: end: 20180125
  3. OXCARBAZEPINE. [Concomitant]
     Active Substance: OXCARBAZEPINE
     Indication: DIABETIC NEUROPATHY
     Dosage: 100 MG, 2X/DAY
  4. NEURONTIN [Suspect]
     Active Substance: GABAPENTIN
     Indication: DIABETIC NEUROPATHY
     Dosage: 800 MG, 2X/DAY
     Dates: start: 2011, end: 2012

REACTIONS (6)
  - Hiccups [Unknown]
  - Urinary incontinence [Recovered/Resolved]
  - Tinnitus [Not Recovered/Not Resolved]
  - Renal disorder [Unknown]
  - Bladder irritation [Unknown]
  - Drug effective for unapproved indication [Unknown]
